FAERS Safety Report 15673790 (Version 1)
Quarter: 2018Q4

REPORT INFORMATION
  Report Type: Spontaneous
  Country: JP (occurrence: JP)
  Receive Date: 20181129
  Receipt Date: 20181129
  Transmission Date: 20190205
  Serious: Yes (Hospitalization, Other)
  Sender: FDA-Public Use
  Company Number: JP-SHIRE-JP201834646

PATIENT

DRUGS (8)
  1. PL [Concomitant]
     Active Substance: ACETAMINOPHEN\CAFFEINE\PROMETHAZINE\SALICYLAMIDE
     Indication: PHARYNGITIS
  2. CALONAL [Concomitant]
     Active Substance: ACETAMINOPHEN
     Indication: GASTROOESOPHAGEAL REFLUX DISEASE
  3. CEFOTIAM [Concomitant]
     Active Substance: CEFOTIAM
     Indication: ENTEROCOLITIS
  4. PENTASA [Concomitant]
     Active Substance: MESALAMINE
     Indication: COLITIS ULCERATIVE
     Route: 054
  5. BIO-THREE [Concomitant]
     Active Substance: HERBALS
     Indication: ENTEROCOLITIS
  6. TAKECAB [Concomitant]
     Active Substance: VONOPRAZAN FUMURATE
     Indication: GASTROOESOPHAGEAL REFLUX DISEASE
  7. LIALDA [Suspect]
     Active Substance: MESALAMINE
     Indication: COLITIS ULCERATIVE
     Dosage: 4800 MG, 1X/DAY:QD
     Route: 048
     Dates: start: 20180806, end: 20180824
  8. CEFCAPENE PIVOXIL HYDROCHLORIDE [Concomitant]
     Active Substance: CEFCAPENE PIVOXIL HYDROCHLORIDE
     Indication: PHARYNGITIS

REACTIONS (5)
  - Pyrexia [Recovered/Resolved]
  - Enterocolitis [Recovered/Resolved]
  - C-reactive protein increased [Recovered/Resolved]
  - Pharyngitis [Recovered/Resolved]
  - Arthralgia [Recovered/Resolved]

NARRATIVE: CASE EVENT DATE: 20180815
